FAERS Safety Report 5320457-1 (Version None)
Quarter: 2007Q1

REPORT INFORMATION
  Report Type: 
  Country: None (occurrence: None)
  Receive Date: 20070220
  Receipt Date: 20061208
  Transmission Date: 20070707
  Serious: No
  Sender: FDA-Public Use
  Company Number: WAES 0612USA01524

PATIENT
  Age: 53 Year
  Sex: Male

DRUGS (7)
  1. JANUVIA [Suspect]
     Indication: DIABETES MELLITUS
     Dosage: 100 MG/DAILY/PO
     Route: 048
     Dates: start: 20061110
  2. AMARYL [Concomitant]
  3. AVALIDE [Concomitant]
  4. NORVASC [Concomitant]
  5. SOMA [Concomitant]
  6. TOPROL-XL [Concomitant]
  7. WELLBUTRIN [Concomitant]

REACTIONS (1)
  - VISION BLURRED [None]
